FAERS Safety Report 9003960 (Version 2)
Quarter: 2013Q2

REPORT INFORMATION
  Report Type: Spontaneous
  Country: US (occurrence: US)
  Receive Date: 20130109
  Receipt Date: 20130412
  Transmission Date: 20140414
  Serious: Yes (Hospitalization, Other)
  Sender: FDA-Public Use
  Company Number: US-AMGEN-USASP2013000946

PATIENT
  Age: 67 Year
  Sex: Male

DRUGS (1)
  1. ENBREL [Suspect]
     Indication: RHEUMATOID ARTHRITIS
     Dosage: 50 MG, QWK
     Dates: start: 20120501, end: 20121101

REACTIONS (4)
  - Nephrolithiasis [Recovered/Resolved]
  - Stent placement [Recovered/Resolved]
  - Renal colic [Not Recovered/Not Resolved]
  - Infection [Recovered/Resolved]
